FAERS Safety Report 23563735 (Version 1)
Quarter: 2024Q1

REPORT INFORMATION
  Report Type: Spontaneous
  Country: CN (occurrence: None)
  Receive Date: 20240226
  Receipt Date: 20240226
  Transmission Date: 20240410
  Serious: Yes (Hospitalization)
  Sender: FDA-Public Use
  Company Number: CN-ROCHE-3514425

PATIENT
  Sex: Female
  Weight: 80 kg

DRUGS (4)
  1. PERJETA [Suspect]
     Active Substance: PERTUZUMAB
     Indication: Breast cancer
     Route: 065
     Dates: start: 20240130, end: 20240130
  2. HERCEPTIN [Suspect]
     Active Substance: TRASTUZUMAB
     Indication: Breast cancer
     Dosage: FORM OF ADMIN PUMP INJECTION, POWDER INJECTION
     Route: 058
     Dates: start: 20240130, end: 20240130
  3. CARBOPLATIN [Suspect]
     Active Substance: CARBOPLATIN
     Indication: Breast cancer
     Route: 065
     Dates: start: 20240131, end: 20240201
  4. DOCETAXEL [Suspect]
     Active Substance: DOCETAXEL\DOCETAXEL ANHYDROUS
     Indication: Breast cancer
     Route: 065
     Dates: start: 20240131, end: 20240131

REACTIONS (3)
  - Myelosuppression [Recovering/Resolving]
  - Nausea [Unknown]
  - Transaminases increased [Unknown]

NARRATIVE: CASE EVENT DATE: 20240208
